FAERS Safety Report 8038680-4 (Version None)
Quarter: 2012Q1

REPORT INFORMATION
  Report Type: 
  Country: None (occurrence: None)
  Receive Date: 20120111
  Receipt Date: 20111205
  Transmission Date: 20120608
  Serious: No
  Sender: FDA-Public Use
  Company Number: US-AMGEN-USASP2011064520

PATIENT
  Age: 63 Year
  Sex: Female

DRUGS (3)
  1. METHADONE HCL [Concomitant]
     Dosage: UNK
  2. ENBREL [Suspect]
     Indication: RHEUMATOID ARTHRITIS
     Dosage: 50 MG, QWK
     Dates: start: 20111101
  3. HYDROCODONE BITARTRATE [Concomitant]
     Dosage: UNK

REACTIONS (1)
  - RASH [None]
